FAERS Safety Report 6075676-6 (Version None)
Quarter: 2009Q1

REPORT INFORMATION
  Report Type: 
  Country: None (occurrence: None)
  Receive Date: 20090212
  Receipt Date: 20090203
  Transmission Date: 20090719
  Serious: Yes (Disabling)
  Sender: FDA-Public Use
  Company Number: GB-ABBOTT-08P-167-0489236-00

PATIENT
  Sex: Male

DRUGS (3)
  1. HUMIRA [Suspect]
     Indication: DRUG USE FOR UNKNOWN INDICATION
     Dosage: TREATMENT STOPPED FOR ONE MONTH
     Route: 050
     Dates: start: 20080501, end: 20081001
  2. CALCICHEW D3 [Concomitant]
     Indication: OSTEOPOROSIS
  3. IBANDRONATE SODIUM [Concomitant]
     Indication: OSTEOPOROSIS
     Route: 042

REACTIONS (3)
  - ILL-DEFINED DISORDER [None]
  - PARAESTHESIA ORAL [None]
  - STOMATITIS [None]
